FAERS Safety Report 6901652-4 (Version None)
Quarter: 2010Q3

REPORT INFORMATION
  Report Type: 
  Country: None (occurrence: None)
  Receive Date: 20100803
  Receipt Date: 20080228
  Transmission Date: 20110219
  Serious: Yes (Other)
  Sender: FDA-Public Use
  Company Number: US-PFIZER INC-2008017020

PATIENT
  Sex: Female
  Weight: 80.7 kg

DRUGS (6)
  1. LYRICA [Suspect]
     Indication: FIBROMYALGIA
     Dates: start: 20080101
  2. LISINOPRIL [Concomitant]
  3. PROZAC [Concomitant]
  4. CYMBALTA [Concomitant]
  5. VITAMIN TAB [Concomitant]
  6. PAXIL [Concomitant]

REACTIONS (4)
  - BURNING SENSATION [None]
  - ERYTHEMA [None]
  - ILL-DEFINED DISORDER [None]
  - WEIGHT INCREASED [None]
